FAERS Safety Report 12213673 (Version 1)
Quarter: 2016Q1

REPORT INFORMATION
  Report Type: Spontaneous
  Country: US (occurrence: US)
  Receive Date: 20160328
  Receipt Date: 20160328
  Transmission Date: 20160526
  Serious: Yes (Death)
  Sender: FDA-Public Use
  Company Number: US-MALLINCKRODT-T201600981

PATIENT
  Sex: Male

DRUGS (4)
  1. GABLOFEN [Suspect]
     Active Substance: BACLOFEN
     Indication: MUSCLE SPASTICITY
     Dosage: 240.14 MCG/DAY
     Route: 037
  2. COLACE [Concomitant]
     Active Substance: DOCUSATE SODIUM
  3. PROTONIX [Concomitant]
     Active Substance: PANTOPRAZOLE SODIUM
  4. ASA [Concomitant]
     Active Substance: ASPIRIN

REACTIONS (2)
  - Death [Fatal]
  - Hospitalisation [Fatal]
